FAERS Safety Report 21902693 (Version 5)
Quarter: 2023Q2

REPORT INFORMATION
  Report Type: Spontaneous
  Country: JP (occurrence: JP)
  Receive Date: 20230124
  Receipt Date: 20230613
  Transmission Date: 20230721
  Serious: Yes (Life-Threatening, Other)
  Sender: FDA-Public Use
  Company Number: JP-CHUGAI-2023001309

PATIENT
  Age: 54 Year
  Sex: Male
  Weight: 64 kg

DRUGS (14)
  1. ACTEMRA [Suspect]
     Active Substance: TOCILIZUMAB
     Indication: Castleman^s disease
     Dosage: 520 MILLIGRAM/DAY
     Route: 041
     Dates: start: 20221209, end: 20221223
  2. ACTEMRA [Suspect]
     Active Substance: TOCILIZUMAB
     Dosage: 680 MILLIGRAM, ONCE/2WEEKS
     Route: 041
     Dates: start: 20220918
  3. ACTEMRA [Suspect]
     Active Substance: TOCILIZUMAB
     Dosage: 640 MILLIGRAM, ONCE/2WEEKS
     Route: 041
     Dates: start: 20221014
  4. ACTEMRA [Suspect]
     Active Substance: TOCILIZUMAB
     Dosage: 560 MILLIGRAM, ONCE/2WEEKS
     Route: 041
     Dates: start: 20221020
  5. ACTEMRA [Suspect]
     Active Substance: TOCILIZUMAB
     Dosage: 520 MILLIGRAM, ONCE/2WEEKS
     Route: 041
     Dates: start: 20221111, end: 20221223
  6. NEORAL [Concomitant]
     Active Substance: CYCLOSPORINE
     Dosage: UNK
     Route: 048
  7. URSO [Concomitant]
     Active Substance: URSODIOL
     Dosage: UNK
     Route: 065
  8. ADALAT [Concomitant]
     Active Substance: NIFEDIPINE
     Dosage: UNK
     Route: 048
     Dates: end: 20221223
  9. VONOPRAZAN FUMARATE [Concomitant]
     Active Substance: VONOPRAZAN FUMARATE
     Dosage: UNK
     Route: 048
  10. LOCHOL (JAPAN) [Concomitant]
     Dosage: UNK
     Route: 048
  11. ACTONEL [Concomitant]
     Active Substance: RISEDRONATE SODIUM
     Dosage: UNK
     Route: 048
  12. FEBUXOSTAT [Concomitant]
     Active Substance: FEBUXOSTAT
     Dosage: UNK
     Route: 048
  13. PREDNISOLONE [Concomitant]
     Active Substance: PREDNISOLONE
     Dosage: UNK
     Route: 048
  14. ATOVAQUONE [Concomitant]
     Active Substance: ATOVAQUONE
     Route: 048
     Dates: start: 20221004

REACTIONS (3)
  - Anaphylactic shock [Recovered/Resolved]
  - COVID-19 [Unknown]
  - Off label use [Unknown]

NARRATIVE: CASE EVENT DATE: 20220918
